FAERS Safety Report 9069680 (Version 1)
Quarter: 2013Q1

REPORT INFORMATION
  Report Type: Report from Study
  Country: US (occurrence: US)
  Receive Date: 20130131
  Receipt Date: 20130131
  Transmission Date: 20140127
  Serious: No
  Sender: FDA-Public Use
  Company Number: US-ABBOTT-12P-163-1005512-00

PATIENT
  Age: 53 Year
  Sex: Female

DRUGS (22)
  1. HUMIRA [Suspect]
     Indication: CROHN^S DISEASE
     Dates: start: 20120925, end: 20120925
  2. HUMIRA [Suspect]
     Dates: start: 20121009, end: 20121009
  3. HUMIRA [Suspect]
     Dates: start: 20121106
  4. CALCIUM CITRATE + D [Concomitant]
     Indication: ROUTINE HEALTH MAINTENANCE
  5. CALCIUM CITRATE + D [Concomitant]
     Indication: ROUTINE HEALTH MAINTENANCE
  6. GLUCOSAMINE [Concomitant]
     Indication: ROUTINE HEALTH MAINTENANCE
  7. MAGNESIUM [Concomitant]
     Indication: CROHN^S DISEASE
  8. MAGNESIUM [Concomitant]
     Indication: DRUG LEVEL DECREASED
     Dosage: WEEKLY
  9. FENTANYL [Concomitant]
     Indication: PAIN
     Route: 062
  10. IMURAN [Concomitant]
     Indication: CROHN^S DISEASE
  11. FLEXERIL [Concomitant]
     Indication: MUSCLE SPASMS
  12. PROZAC [Concomitant]
     Indication: NERVOUS SYSTEM DISORDER
  13. PEPCID [Concomitant]
     Indication: GASTROOESOPHAGEAL REFLUX DISEASE
  14. GABAPENTIN [Concomitant]
     Indication: NEUROPATHY PERIPHERAL
  15. FOLIC ACID [Concomitant]
     Indication: PRODUCT USED FOR UNKNOWN INDICATION
  16. FOBIC [Concomitant]
     Indication: VITAMIN B COMPLEX DEFICIENCY
  17. TENORMIN [Concomitant]
     Indication: HYPERTENSION
  18. PRINIVIL [Concomitant]
     Indication: RENAL LITHIASIS PROPHYLAXIS
  19. TRAZODONE [Concomitant]
     Indication: INSOMNIA
     Dosage: 1 TAB QHS
  20. HYDROCODONE [Concomitant]
     Indication: PAIN
     Dosage: 7.5/325MG 1 TAB PRN UP TO 3 TAB DAILY
  21. NORTREL [Concomitant]
     Indication: HORMONE REPLACEMENT THERAPY
     Dosage: 135/28 1 DAILY
  22. B-12 [Concomitant]
     Indication: PRODUCT USED FOR UNKNOWN INDICATION
     Dosage: MONTHLY

REACTIONS (3)
  - Injection site erythema [Unknown]
  - Blood iron abnormal [Unknown]
  - Red blood cell sedimentation rate abnormal [Unknown]
